FAERS Safety Report 16795995 (Version 1)
Quarter: 2019Q3

REPORT INFORMATION
  Report Type: Spontaneous
  Country: FR (occurrence: FR)
  Receive Date: 20190911
  Receipt Date: 20190911
  Transmission Date: 20191005
  Serious: Yes (Life-Threatening)
  Sender: FDA-Public Use
  Company Number: FR-MYLANLABS-2019M1085007

PATIENT
  Age: 54 Year
  Sex: Female
  Weight: 64 kg

DRUGS (3)
  1. ROPIVACAINE MYLAN 7,5 MG/ML, SOLUTION INJECTABLE EN AMPOULE [Suspect]
     Active Substance: ROPIVACAINE
     Indication: ANAESTHESIA
     Dosage: 140 MILLIGRAM, TOTAL
     Route: 053
     Dates: start: 20190324
  2. AMOXICILLIN,CLAVULANIC ACID MYLAN [Suspect]
     Active Substance: AMOXICILLIN\CLAVULANIC ACID
     Indication: ANTIBIOTIC PROPHYLAXIS
     Dosage: 2 GRAM, TOTAL
     Route: 041
     Dates: start: 20190324
  3. PROPOFOL LIPURO [Suspect]
     Active Substance: PROPOFOL
     Indication: SEDATION
     Dosage: 30 MILLIGRAM, TOTAL
     Route: 042
     Dates: start: 20190324

REACTIONS (1)
  - Anaphylactic shock [Recovered/Resolved]

NARRATIVE: CASE EVENT DATE: 20190324
